FAERS Safety Report 5247847-X (Version None)
Quarter: 2007Q1

REPORT INFORMATION
  Report Type: 
  Country: None (occurrence: None)
  Receive Date: 20070220
  Receipt Date: 20070209
  Transmission Date: 20070707
  Serious: Yes (Life-Threatening, Other)
  Sender: FDA-Public Use
  Company Number: 235760

PATIENT
  Age: 85 Year
  Sex: Female

DRUGS (12)
  1. LUCENTIS [Suspect]
     Indication: MACULAR DEGENERATION
     Dosage: SEE IMAGE
     Dates: start: 20061114
  2. LUCENTIS [Suspect]
     Indication: MACULAR DEGENERATION
     Dosage: SEE IMAGE
     Dates: start: 20061212
  3. LUCENTIS [Suspect]
  4. AVAPRO [Concomitant]
  5. LASIX [Concomitant]
  6. STARLIX [Concomitant]
  7. XANAX [Concomitant]
  8. PREDNISONE TAB [Concomitant]
  9. ALBUTEROL (ALBUTEROL/ALBUTEROL SULFATE) [Concomitant]
  10. XOPENEX (LEVALBUTERL HYDROCHLORIDE) [Concomitant]
  11. SPIRIVA [Concomitant]
  12. FOLVENT (FLUTICASONE PROPIONATE) [Concomitant]

REACTIONS (2)
  - CHRONIC OBSTRUCTIVE PULMONARY DISEASE [None]
  - MALAISE [None]
